FAERS Safety Report 7705773-8 (Version None)
Quarter: 2011Q3

REPORT INFORMATION
  Report Type: 
  Country: None (occurrence: None)
  Receive Date: 20110824
  Receipt Date: 20110824
  Transmission Date: 20111222
  Serious: Yes (Death)
  Sender: FDA-Public Use
  Company Number: None

PATIENT
  Sex: Male
  Weight: 126.55 kg

DRUGS (1)
  1. GENETICALLY MODIFIED T CELLS [Suspect]
     Indication: MANTLE CELL LYMPHOMA
     Dosage: 6 X 10E7
     Route: 042
     Dates: start: 20110804, end: 20110804

REACTIONS (4)
  - PANCYTOPENIA [None]
  - RESPIRATORY FAILURE [None]
  - RESPIRATORY DISTRESS [None]
  - SEPSIS [None]
